FAERS Safety Report 5120125-5 (Version None)
Quarter: 2006Q4

REPORT INFORMATION
  Report Type: 
  Country: None (occurrence: None)
  Receive Date: 20061002
  Receipt Date: 20061002
  Transmission Date: 20070319
  Serious: Yes (Other)
  Sender: FDA-Public Use
  Company Number: None

PATIENT
  Age: 9 Year
  Sex: Male
  Weight: 37.195 kg

DRUGS (1)
  1. CLARITIN [Suspect]
     Indication: MULTIPLE ALLERGIES
     Dosage: 1 DAY
     Dates: start: 20000101

REACTIONS (1)
  - RASH [None]
